FAERS Safety Report 6709955-3 (Version None)
Quarter: 2010Q2

REPORT INFORMATION
  Report Type: 
  Country: None (occurrence: None)
  Receive Date: 20100504
  Receipt Date: 20100427
  Transmission Date: 20101027
  Serious: Yes (Other)
  Sender: FDA-Public Use
  Company Number: US-SANOFI-AVENTIS-2010SA009327

PATIENT
  Age: 67 Year
  Sex: Female
  Weight: 80.73 kg

DRUGS (9)
  1. LANTUS [Suspect]
     Indication: TYPE 2 DIABETES MELLITUS
     Dosage: DOSE:20 UNIT(S)
     Route: 058
     Dates: start: 20040101
  2. SOLOSTAR [Suspect]
     Indication: TYPE 2 DIABETES MELLITUS
  3. METFORMIN [Concomitant]
     Route: 065
  4. COUMADIN [Concomitant]
     Route: 065
     Dates: start: 19800101
  5. ZOCOR [Concomitant]
     Route: 065
  6. DIGOXIN [Concomitant]
     Route: 065
     Dates: start: 20070101
  7. AMIODARONE HCL [Concomitant]
     Route: 065
     Dates: start: 20070101
  8. METAMUCIL-2 [Concomitant]
     Dosage: 3 T EVERY MORNING
     Route: 048
     Dates: start: 20100101
  9. ALL OTHER THERAPEUTIC PRODUCTS [Concomitant]
     Dosage: 1- 2 T EVERY MORNING
     Route: 048
     Dates: start: 20100101

REACTIONS (1)
  - WEIGHT DECREASED [None]
